FAERS Safety Report 14294077 (Version 1)
Quarter: 2017Q4

REPORT INFORMATION
  Report Type: Spontaneous
  Country: FI (occurrence: FI)
  Receive Date: 20171217
  Receipt Date: 20171217
  Transmission Date: 20180321
  Serious: Yes (Life-Threatening, Hospitalization, Other)
  Sender: FDA-Public Use
  Company Number: FI-CIPLA LTD.-2017FI25602

PATIENT

DRUGS (2)
  1. AMLODIPINE [Suspect]
     Active Substance: AMLODIPINE BESYLATE
     Indication: HYPERTENSION
     Dosage: 5 MG, DAILY
     Route: 048
  2. HYDREX SEMI [Concomitant]
     Dosage: 0.5 DF, DAILY
     Route: 048

REACTIONS (2)
  - Heart rate increased [Recovered/Resolved]
  - Therapeutic response changed [Recovered/Resolved]

NARRATIVE: CASE EVENT DATE: 201506
